FAERS Safety Report 18615417 (Version 1)
Quarter: 2020Q4

REPORT INFORMATION
  Report Type: Report from Study
  Country: None (occurrence: US)
  Receive Date: 20201214
  Receipt Date: 20201214
  Transmission Date: 20210114
  Serious: Yes (Hospitalization, Other)
  Sender: FDA-Public Use
  Company Number: US-ABBVIE-20K-163-3688462-00

PATIENT
  Sex: Male

DRUGS (6)
  1. VENCLEXTA [Suspect]
     Active Substance: VENETOCLAX
     Dosage: THEN 400MG DAILY THEREAFTER, UNTIL 8/27/19
     Route: 048
     Dates: start: 20190529, end: 20190826
  2. VENCLEXTA [Suspect]
     Active Substance: VENETOCLAX
     Dosage: VENCLEXTA 100MG TABLETS (400MG DAILY) AND PATIENT CONTINUES ON THIS DOSAGE
     Route: 048
     Dates: start: 20200408
  3. XOSPATA [Concomitant]
     Active Substance: GILTERITINIB
     Indication: MYELODYSPLASTIC SYNDROME
     Dates: start: 20191228
  4. VENCLEXTA [Suspect]
     Active Substance: VENETOCLAX
     Dosage: DAY 2
     Route: 048
     Dates: start: 20190529, end: 20190529
  5. VENCLEXTA [Suspect]
     Active Substance: VENETOCLAX
     Indication: MYELODYSPLASTIC SYNDROME
     Dosage: DAY 1
     Route: 048
     Dates: start: 20190528, end: 20190528
  6. VENCLEXTA [Suspect]
     Active Substance: VENETOCLAX
     Route: 048
     Dates: start: 20190827, end: 20200407

REACTIONS (1)
  - Hip fracture [Unknown]
